FAERS Safety Report 5753229-4 (Version None)
Quarter: 2008Q2

REPORT INFORMATION
  Report Type: 
  Country: None (occurrence: None)
  Receive Date: 20080530
  Receipt Date: 20070405
  Transmission Date: 20081010
  Serious: No
  Sender: FDA-Public Use
  Company Number: A0646886A

PATIENT
  Sex: Female

DRUGS (2)
  1. VENTOLIN [Suspect]
     Indication: WHEEZING
     Dates: start: 20061001
  2. PROVENTIL-HFA [Suspect]
     Indication: WHEEZING

REACTIONS (1)
  - DRUG INEFFECTIVE [None]
